FAERS Safety Report 14459551 (Version 1)
Quarter: 2018Q1

REPORT INFORMATION
  Report Type: Spontaneous
  Country: US (occurrence: US)
  Receive Date: 20180129
  Receipt Date: 20180129
  Transmission Date: 20180509
  Serious: No
  Sender: FDA-Public Use
  Company Number: None

PATIENT
  Age: 7 Year
  Sex: Female
  Weight: 22.05 kg

DRUGS (2)
  1. OSELTAMIVIR PHOSPHATE FOR ORAL SUSPENSION [Suspect]
     Active Substance: OSELTAMIVIR PHOSPHATE
     Indication: INFLUENZA
     Dosage: ?          QUANTITY:1 DROP(S);?
     Route: 048
     Dates: start: 20180126, end: 20180127
  2. TYLENOL [Concomitant]
     Active Substance: ACETAMINOPHEN

REACTIONS (6)
  - Middle insomnia [None]
  - Fear [None]
  - Hallucination [None]
  - Speech disorder [None]
  - Crying [None]
  - Soliloquy [None]

NARRATIVE: CASE EVENT DATE: 20180126
